FAERS Safety Report 6880180-9 (Version None)
Quarter: 2010Q3

REPORT INFORMATION
  Report Type: 
  Country: None (occurrence: None)
  Receive Date: 20100728
  Receipt Date: 20100331
  Transmission Date: 20110219
  Serious: Yes (Hospitalization)
  Sender: FDA-Public Use
  Company Number: US-BRISTOL-MYERS SQUIBB COMPANY-15044357

PATIENT
  Age: 58 Year
  Sex: Female
  Weight: 81 kg

DRUGS (12)
  1. SPRYCEL [Suspect]
     Indication: CHRONIC MYELOID LEUKAEMIA
     Dosage: 100MG IN NOV2009 RESTARTED ON 05-JAN-2010, AT 50MG AND NOW TAKING 70MG
     Dates: start: 20090201
  2. METFORMIN HCL [Concomitant]
  3. GLYBURIDE [Concomitant]
     Dosage: 1 DF = 5MG IN THE AM AND 2.5MG IN THE PM
  4. DIOVAN [Concomitant]
  5. HYDROCHLOROTHIAZIDE [Concomitant]
  6. LEVOXYL [Concomitant]
     Dates: start: 20100101
  7. LASIX [Concomitant]
     Dosage: 1 DF = 40MG IN THE AM AND 20MG IN PM
     Dates: start: 20091101
  8. POTASSIUM [Concomitant]
     Dates: start: 20091101
  9. AMITRIPTYLINE HYDROCHLORIDE [Concomitant]
  10. LOVAZA [Concomitant]
     Dosage: 1 DF = LOVAZA 1 GM 2 TABLETS IN THE AM AND 1 GM 2 TABLETS IN THE PM
  11. VITAMIN B6 [Concomitant]
     Dates: start: 20090701
  12. FOLIC ACID [Concomitant]
     Dates: start: 20090701

REACTIONS (4)
  - EFFUSION [None]
  - FLUID RETENTION [None]
  - PLEURAL EFFUSION [None]
  - PNEUMONIA [None]
